FAERS Safety Report 23983201 (Version 1)
Quarter: 2024Q2

REPORT INFORMATION
  Report Type: Spontaneous
  Country: US (occurrence: US)
  Receive Date: 20240617
  Receipt Date: 20240617
  Transmission Date: 20240716
  Serious: Yes (Hospitalization, Other)
  Sender: FDA-Public Use
  Company Number: US-BRISTOL-MYERS SQUIBB COMPANY-2024-095502

PATIENT
  Age: 62 Year
  Sex: Male
  Weight: 72.57 kg

DRUGS (1)
  1. POMALYST [Suspect]
     Active Substance: POMALIDOMIDE
     Indication: Plasma cell myeloma
     Dosage: FREQUENCY: DAILY X 14 DAYS ON AND 7 DAYS OFF
     Route: 048
     Dates: start: 20200918

REACTIONS (2)
  - Pneumonia [Recovered/Resolved]
  - Off label use [Unknown]
